FAERS Safety Report 8304766 (Version 11)
Quarter: 2014Q1

REPORT INFORMATION
  Report Type: Report from Study
  Country: GB (occurrence: GB)
  Receive Date: 20111221
  Receipt Date: 20140312
  Transmission Date: 20141002
  Serious: Yes (Hospitalization)
  Sender: FDA-Public Use
  Company Number: GB-BRISTOL-MYERS SQUIBB COMPANY-16262065

PATIENT
  Age: 65 Year
  Sex: Male

DRUGS (5)
  1. SAXAGLIPTIN [Suspect]
     Indication: TYPE 2 DIABETES MELLITUS
     Dosage: THERAPY ON 27OCT10,INTERRUPTED ON 30OCT10 + 10SEP11.?RESUMED ON 20JAN11.
     Dates: start: 20071027
  2. METFORMIN HCL [Suspect]
     Indication: TYPE 2 DIABETES MELLITUS
     Dates: end: 20111201
  3. GLICLAZIDE [Suspect]
     Indication: TYPE 2 DIABETES MELLITUS
     Dates: end: 20111201
  4. ASPIRIN [Concomitant]
     Dosage: 1DF:{100MG
  5. RAMIPRIL [Concomitant]

REACTIONS (3)
  - Gastroenteritis [Not Recovered/Not Resolved]
  - Hypoglycaemia [Recovered/Resolved]
  - General physical health deterioration [Recovered/Resolved]
